FAERS Safety Report 5576360-5 (Version None)
Quarter: 2007Q4

REPORT INFORMATION
  Report Type: 
  Country: None (occurrence: None)
  Receive Date: 20071228
  Receipt Date: 20071221
  Transmission Date: 20080405
  Serious: Yes (Hospitalization)
  Sender: FDA-Public Use
  Company Number: AU-BRISTOL-MYERS SQUIBB COMPANY-13968631

PATIENT
  Age: 61 Year
  Sex: Male

DRUGS (2)
  1. ERBITUX [Suspect]
     Indication: COLORECTAL CANCER
     Dosage: LOADING DOSE:700MG ONCE,400MG 1/1WEEK OCT07;300MG 1/1 WEEK -OCT07-ONGOING,DOSE REDUCED ON 30OCT07.
     Route: 042
     Dates: start: 20071001
  2. IRINOTECAN HCL [Suspect]
     Indication: COLORECTAL CANCER
     Route: 042

REACTIONS (2)
  - INTESTINAL OBSTRUCTION [None]
  - SKIN REACTION [None]
